FAERS Safety Report 6661410-5 (Version None)
Quarter: 2010Q1

REPORT INFORMATION
  Report Type: 
  Country: None (occurrence: None)
  Receive Date: 20100331
  Receipt Date: 20100317
  Transmission Date: 20100710
  Serious: Yes (Hospitalization)
  Sender: FDA-Public Use
  Company Number: NL-MEDIMMUNE-MEDI-0010846

PATIENT
  Sex: Male
  Weight: 3.41 kg

DRUGS (5)
  1. SYNAGIS [Suspect]
     Route: 030
     Dates: start: 20100217, end: 20100217
  2. SYNAGIS [Suspect]
     Route: 030
     Dates: start: 20100317, end: 20100317
  3. FERROFUMERATE [Concomitant]
     Dosage: 20 MG/ML TID
     Route: 048
  4. NULYTELY [Concomitant]
     Dosage: 6.9 G, HALVE A SACHET QID
     Route: 048
  5. CITRATE DRINK [Concomitant]
     Route: 048

REACTIONS (7)
  - CHOKING [None]
  - MOOD ALTERED [None]
  - OXYGEN SATURATION DECREASED [None]
  - PNEUMONIA [None]
  - PRODUCTIVE COUGH [None]
  - RESPIRATORY TRACT INFECTION [None]
  - VOMITING [None]
